FAERS Safety Report 5943221-9 (Version None)
Quarter: 2008Q4

REPORT INFORMATION
  Report Type: 
  Country: None (occurrence: None)
  Receive Date: 20081106
  Receipt Date: 20081103
  Transmission Date: 20090506
  Serious: Yes (Hospitalization)
  Sender: FDA-Public Use
  Company Number: B0544930A

PATIENT
  Sex: Female

DRUGS (2)
  1. TOPOTECAN [Suspect]
     Dosage: .75MGM2 EVERY 3 WEEKS
     Route: 042
     Dates: start: 20080818
  2. CISPLATIN [Suspect]
     Dosage: 50MGM2 EVERY 3 WEEKS
     Route: 042
     Dates: start: 20080818

REACTIONS (2)
  - ABDOMINAL PAIN [None]
  - GASTRITIS [None]
